FAERS Safety Report 4463076-1 (Version None)
Quarter: 2004Q3

REPORT INFORMATION
  Report Type: 
  Country: None (occurrence: None)
  Receive Date: 20040928
  Receipt Date: 20040914
  Transmission Date: 20050211
  Serious: Yes (Death)
  Sender: FDA-Public Use
  Company Number: S04-USA-06176-01

PATIENT
  Age: 36 Year
  Sex: Male

DRUGS (7)
  1. LEXAPRO [Suspect]
     Indication: ANXIETY
     Dosage: 10 MG QD PO
     Route: 048
     Dates: start: 20040727, end: 20040906
  2. LEXAPRO [Suspect]
     Indication: DEPRESSION
     Dosage: 10 MG QD PO
     Route: 048
     Dates: start: 20040727, end: 20040906
  3. BUSPAR [Concomitant]
  4. NOVOIX (INSULIN ASPART) [Concomitant]
  5. METFORMIN [Concomitant]
  6. STARLIX [Concomitant]
  7. LANTUS [Concomitant]

REACTIONS (5)
  - BLOOD ALCOHOL INCREASED [None]
  - COMPLETED SUICIDE [None]
  - GUN SHOT WOUND [None]
  - SELF INJURIOUS BEHAVIOUR [None]
  - STRESS SYMPTOMS [None]
